FAERS Safety Report 16898051 (Version 1)
Quarter: 2019Q4

REPORT INFORMATION
  Report Type: Spontaneous
  Country: DE (occurrence: DE)
  Receive Date: 20191009
  Receipt Date: 20191009
  Transmission Date: 20200122
  Serious: Yes (Hospitalization, Disabling, Other)
  Sender: FDA-Public Use
  Company Number: DE-ACCORD-156609

PATIENT
  Age: 58 Year
  Sex: Male
  Weight: 60 kg

DRUGS (9)
  1. BISOHEXAL [Concomitant]
     Active Substance: BISOPROLOL FUMARATE
     Dosage: 1-0-0, STRENGTH 5 MG
  2. COLESTYRAMINE [Concomitant]
     Active Substance: CHOLESTYRAMINE
     Dosage: 1-1-1, PACKET
  3. LIXIANA [Concomitant]
     Active Substance: EDOXABAN TOSYLATE
     Dosage: 1-0-0, STRENGTH 30 MG
  4. URSOFALK [Concomitant]
     Active Substance: URSODIOL
     Dosage: 1-0-1, STRENGTH 250 MG
     Route: 048
  5. BICANORM [Concomitant]
     Active Substance: SODIUM BICARBONATE
     Dosage: 1-1-1, STRENGTH 1000 MG
     Route: 048
  6. GABAPENTIN. [Concomitant]
     Active Substance: GABAPENTIN
     Indication: POST HERPETIC NEURALGIA
     Dosage: 1-1-1, STRENGTH 500 MG
     Route: 048
  7. SIMVASTATIN. [Suspect]
     Active Substance: SIMVASTATIN
     Indication: HYPERLIPIDAEMIA
     Dosage: STRENGTH 40 MG, 0-0-2
     Route: 048
  8. TAMSULOSIN/TAMSULOSIN HYDROCHLORIDE [Concomitant]
     Indication: BENIGN PROSTATIC HYPERPLASIA
     Dosage: 0-0-1, STRENGTH 0,4 MG
     Route: 048
  9. HEPA-MERZ [Concomitant]
     Dosage: 1-1-1, PACKET.

REACTIONS (2)
  - Rhabdomyolysis [Not Recovered/Not Resolved]
  - General physical health deterioration [Unknown]

NARRATIVE: CASE EVENT DATE: 20190906
